FAERS Safety Report 7632551-0 (Version None)
Quarter: 2011Q3

REPORT INFORMATION
  Report Type: 
  Country: None (occurrence: None)
  Receive Date: 20110725
  Receipt Date: 20101008
  Transmission Date: 20111222
  Serious: No
  Sender: FDA-Public Use
  Company Number: US-BRISTOL-MYERS SQUIBB COMPANY-15324999

PATIENT
  Age: 66 Year
  Sex: Male

DRUGS (4)
  1. COUMADIN [Suspect]
     Dates: start: 20100101
  2. PROTONIX [Concomitant]
     Dates: start: 20100101
  3. LEXAPRO [Concomitant]
     Dates: start: 20100101
  4. MULTI-VITAMIN [Concomitant]
     Dosage: GLUTEN FREE
     Dates: start: 20100101

REACTIONS (1)
  - RASH [None]
